FAERS Safety Report 20111250 (Version 2)
Quarter: 2021Q4

REPORT INFORMATION
  Report Type: Spontaneous
  Country: US (occurrence: US)
  Receive Date: 20211125
  Receipt Date: 20211206
  Transmission Date: 20220303
  Serious: No
  Sender: FDA-Public Use
  Company Number: US-STRONGBRIDGE BIOPHARMA-2021-STR-000385

PATIENT
  Sex: Male

DRUGS (1)
  1. KEVEYIS [Suspect]
     Active Substance: DICHLORPHENAMIDE
     Indication: Myotonia
     Dosage: 50 MG, BID
     Route: 048
     Dates: start: 20211101

REACTIONS (7)
  - Somnolence [Unknown]
  - Pain in extremity [Unknown]
  - Decreased activity [Unknown]
  - Memory impairment [Unknown]
  - Insomnia [Unknown]
  - Feeling abnormal [Unknown]
  - Headache [Unknown]
